FAERS Safety Report 9430581 (Version 1)
Quarter: 2013Q3

REPORT INFORMATION
  Report Type: Spontaneous
  Country: US (occurrence: US)
  Receive Date: 20130730
  Receipt Date: 20130730
  Transmission Date: 20140515
  Serious: No
  Sender: FDA-Public Use
  Company Number: US-ABBOTT-13P-163-1086725-00

PATIENT
  Age: 66 Year
  Sex: Female
  Weight: 81.72 kg

DRUGS (9)
  1. NIASPAN (COATED) [Suspect]
     Indication: BLOOD TRIGLYCERIDES INCREASED
     Dates: start: 20130502
  2. ASPIRIN [Concomitant]
     Indication: PROPHYLAXIS
  3. ATENOLOL [Concomitant]
     Indication: HYPERTENSION
  4. CLONODINE [Concomitant]
     Indication: HYPERTENSION
  5. LOSARTAN / HYDROCHLOROTHIAZID STADA [Concomitant]
     Indication: HYPERTENSION
  6. METFORMIN ER [Concomitant]
     Indication: DIABETES MELLITUS
  7. SIMVASTATIN [Concomitant]
     Indication: BLOOD TRIGLYCERIDES INCREASED
  8. LEXAPRO [Concomitant]
     Indication: DEPRESSION
  9. TRIGENTA [Concomitant]
     Indication: DIABETES MELLITUS
     Dates: start: 201304

REACTIONS (2)
  - Erythema [Recovered/Resolved]
  - Flushing [Recovered/Resolved]
